FAERS Safety Report 20361520 (Version 1)
Quarter: 2022Q1

REPORT INFORMATION
  Report Type: Report from Study
  Country: DO (occurrence: DO)
  Receive Date: 20220121
  Receipt Date: 20220121
  Transmission Date: 20220423
  Serious: Yes (Other)
  Sender: FDA-Public Use
  Company Number: DO-NOVARTISPH-NVSC2022DO011133

PATIENT
  Age: 66 Year
  Sex: Female

DRUGS (1)
  1. EXFORGE HCT [Suspect]
     Active Substance: AMLODIPINE BESYLATE\HYDROCHLOROTHIAZIDE\VALSARTAN
     Indication: Product used for unknown indication
     Dosage: UNK (5/160/25 MG, 7 MONTHS APPROXIMATELY)
     Route: 065

REACTIONS (5)
  - Cerebrovascular accident [Unknown]
  - Mental impairment [Unknown]
  - Eye disorder [Unknown]
  - Blood pressure fluctuation [Unknown]
  - Hypoacusis [Unknown]
